FAERS Safety Report 14975545 (Version 2)
Quarter: 2018Q2

REPORT INFORMATION
  Report Type: Spontaneous
  Country: JP (occurrence: JP)
  Receive Date: 20180605
  Receipt Date: 20180614
  Transmission Date: 20180711
  Serious: Yes (Other)
  Sender: FDA-Public Use
  Company Number: PHJP2018JP011978

PATIENT
  Age: 56 Year
  Sex: Female

DRUGS (1)
  1. ZOMETA [Suspect]
     Active Substance: ZOLEDRONIC ACID
     Indication: LUNG NEOPLASM MALIGNANT
     Dosage: UNK
     Route: 042

REACTIONS (2)
  - Osteonecrosis of jaw [Unknown]
  - Product use in unapproved indication [Unknown]
